FAERS Safety Report 22530592 (Version 1)
Quarter: 2023Q2

REPORT INFORMATION
  Report Type: Spontaneous
  Country: CN (occurrence: CN)
  Receive Date: 20230607
  Receipt Date: 20230607
  Transmission Date: 20230722
  Serious: Yes (Other)
  Sender: FDA-Public Use
  Company Number: None

PATIENT
  Age: 55 Year
  Sex: Female
  Weight: 65 kg

DRUGS (7)
  1. CYCLOPHOSPHAMIDE [Suspect]
     Active Substance: CYCLOPHOSPHAMIDE
     Indication: Breast cancer female
     Dosage: 1000 MG ONCE DAILY, DILUTED WITH 50 ML OF NS (FIFTH CHEMOTHERAPY)
     Route: 042
     Dates: start: 20230131, end: 20230131
  2. CYCLOPHOSPHAMIDE [Suspect]
     Active Substance: CYCLOPHOSPHAMIDE
     Indication: Chemotherapy
  3. SODIUM CHLORIDE [Suspect]
     Active Substance: SODIUM CHLORIDE
     Indication: Medication dilution
     Dosage: 50 ML, ONCE DAILY, USED TO DILUTE 1000 MG OF CYCLOPHOSPHAMIDE
     Route: 042
     Dates: start: 20230131, end: 20230131
  4. SODIUM CHLORIDE [Suspect]
     Active Substance: SODIUM CHLORIDE
     Dosage: 100 ML, ONCE DAILY, USED TO DILUTE 140 MG OF PHARMORUBICIN
     Route: 041
     Dates: start: 20230131, end: 20230131
  5. EPIRUBICIN [Suspect]
     Active Substance: EPIRUBICIN
     Indication: Breast cancer female
     Dosage: 140 MG ONCE DAILY, DILUTED WITH 100 ML NS (FIFTH CHEMOTHERAPY)
     Route: 041
     Dates: start: 20230131, end: 20230131
  6. EPIRUBICIN [Suspect]
     Active Substance: EPIRUBICIN
     Indication: Chemotherapy
  7. XIN RUI BAI [Concomitant]
     Dosage: 6 MG
     Route: 058
     Dates: start: 20230201

REACTIONS (2)
  - White blood cell count decreased [Recovered/Resolved]
  - Agranulocytosis [Recovered/Resolved]

NARRATIVE: CASE EVENT DATE: 20230207
